FAERS Safety Report 11145766 (Version 1)
Quarter: 2015Q2

REPORT INFORMATION
  Report Type: Spontaneous
  Country: US (occurrence: None)
  Receive Date: 20150527
  Receipt Date: 20150527
  Transmission Date: 20150821
  Serious: No
  Sender: FDA-Public Use
  Company Number: None

PATIENT
  Age: 85 Year
  Sex: Male
  Weight: 70.31 kg

DRUGS (10)
  1. ANDRODERM [Suspect]
     Active Substance: TESTOSTERONE
     Indication: BLOOD TESTOSTERONE DECREASED
     Dosage: ONE PATCH APPLIED AS MEDICATED PATCH TO SKIN
     Route: 062
     Dates: start: 20150509, end: 20150513
  2. MULTIVITAMIN (EQ. TO CENTRUM) [Concomitant]
  3. CALCIUM WITH D [Concomitant]
     Active Substance: CALCIUM\VITAMIN D
  4. PREDNISONE. [Concomitant]
     Active Substance: PREDNISONE
  5. BRIMONIDINE [Concomitant]
     Active Substance: BRIMONIDINE\BRIMONIDINE TARTRATE
  6. CRANBERRY. [Concomitant]
     Active Substance: CRANBERRY
  7. MAGNESIUM [Concomitant]
     Active Substance: MAGNESIUM
  8. FOSAMAX [Concomitant]
     Active Substance: ALENDRONATE SODIUM
  9. AZOPT [Concomitant]
     Active Substance: BRINZOLAMIDE
  10. LIPITOR [Concomitant]
     Active Substance: ATORVASTATIN CALCIUM

REACTIONS (2)
  - Peripheral swelling [None]
  - Rash [None]

NARRATIVE: CASE EVENT DATE: 20150513
